FAERS Safety Report 4922455-6 (Version None)
Quarter: 2006Q1

REPORT INFORMATION
  Report Type: 
  Country: None (occurrence: None)
  Receive Date: 20060224
  Receipt Date: 20060210
  Transmission Date: 20060701
  Serious: Yes (Hospitalization)
  Sender: FDA-Public Use
  Company Number: GBWYE389813FEB06

PATIENT

DRUGS (2)
  1. ENBREL [Suspect]
     Indication: DRUG USE FOR UNKNOWN INDICATION
     Dates: start: 20051222, end: 20051229
  2. ENBREL [Suspect]
     Dates: start: 20060126

REACTIONS (2)
  - DEHYDRATION [None]
  - VOMITING [None]
